FAERS Safety Report 19444393 (Version 2)
Quarter: 2021Q3

REPORT INFORMATION
  Report Type: Spontaneous
  Country: JP (occurrence: JP)
  Receive Date: 20210621
  Receipt Date: 20210906
  Transmission Date: 20211014
  Serious: Yes (Death)
  Sender: FDA-Public Use
  Company Number: JP-ASTRAZENECA-2021A539721

PATIENT
  Age: 29983 Day
  Sex: Female
  Weight: 52 kg

DRUGS (4)
  1. DEBERZA [Suspect]
     Active Substance: TOFOGLIFLOZIN
     Indication: DIABETES MELLITUS
     Route: 048
  2. NATRIX [Suspect]
     Active Substance: INDAPAMIDE
     Route: 048
     Dates: end: 20210520
  3. FORXIGA [Suspect]
     Active Substance: DAPAGLIFLOZIN
     Indication: CARDIAC FAILURE
     Route: 048
     Dates: start: 20210515, end: 20210520
  4. INSULIN [Concomitant]
     Active Substance: INSULIN NOS
     Route: 042

REACTIONS (2)
  - Dehydration [Fatal]
  - Euglycaemic diabetic ketoacidosis [Fatal]

NARRATIVE: CASE EVENT DATE: 20210520
